FAERS Safety Report 18291192 (Version 3)
Quarter: 2020Q4

REPORT INFORMATION
  Report Type: Spontaneous
  Country: JP (occurrence: JP)
  Receive Date: 20200922
  Receipt Date: 20201016
  Transmission Date: 20210113
  Serious: Yes (Other)
  Sender: FDA-Public Use
  Company Number: JP-AMGEN-JPNSP2020151987

PATIENT
  Age: 58 Year
  Sex: Male
  Weight: 50.5 kg

DRUGS (16)
  1. PARSABIV [Suspect]
     Active Substance: ETELCALCETIDE HYDROCHLORIDE
     Dosage: 7.5 MG, Q56H
     Route: 010
     Dates: start: 20200522
  2. REGPARA [Concomitant]
     Active Substance: CINACALCET HYDROCHLORIDE
     Dosage: 100 MG, EVERYDAY
     Route: 048
     Dates: end: 20180925
  3. OXAROL [Concomitant]
     Active Substance: MAXACALCITOL
     Dosage: 2.5 UG
     Route: 065
     Dates: end: 20180810
  4. OXAROL [Concomitant]
     Active Substance: MAXACALCITOL
     Dosage: 5 UG, Q56H
     Route: 065
     Dates: start: 20200221, end: 20200615
  5. OXAROL [Concomitant]
     Active Substance: MAXACALCITOL
     Dosage: 2.5 UG, Q56H
     Route: 065
     Dates: start: 20200617
  6. REGPARA [Concomitant]
     Active Substance: CINACALCET HYDROCHLORIDE
     Dosage: 50 MG, EVERYDAY
     Route: 048
     Dates: start: 20191001, end: 20191114
  7. OXAROL [Concomitant]
     Active Substance: MAXACALCITOL
     Dosage: 5 UG, Q56H
     Route: 065
     Dates: start: 20180813, end: 20190828
  8. REGPARA [Concomitant]
     Active Substance: CINACALCET HYDROCHLORIDE
     Dosage: 100 MG, EVERYDAY
     Route: 048
     Dates: start: 20180926, end: 20190930
  9. NESP [Concomitant]
     Active Substance: DARBEPOETIN ALFA
     Dosage: 5 UG, QW
     Route: 065
     Dates: end: 20181230
  10. NESP [Concomitant]
     Active Substance: DARBEPOETIN ALFA
     Dosage: 10 UG, QW
     Route: 065
     Dates: start: 20190408
  11. PARSABIV [Suspect]
     Active Substance: ETELCALCETIDE HYDROCHLORIDE
     Indication: HYPERPARATHYROIDISM SECONDARY
     Dosage: 5 MG, Q56H
     Route: 010
     Dates: start: 20191115, end: 20200520
  12. NESP [Concomitant]
     Active Substance: DARBEPOETIN ALFA
     Dosage: 20 UG, QW
     Route: 065
     Dates: start: 20190107, end: 20190401
  13. FESIN [SACCHARATED IRON OXIDE] [Concomitant]
     Active Substance: IRON SUCROSE
     Dosage: 40 MILLIGRAM, QWK
     Route: 065
     Dates: start: 20190408
  14. PRECIPITATED CALCIUM CARBONATE [Concomitant]
     Active Substance: CALCIUM CARBONATE
     Dosage: 1500 MG, EVERYDAY
     Route: 065
  15. FOSRENOL [Concomitant]
     Active Substance: LANTHANUM CARBONATE
     Dosage: 750 MG, EVERYDAY
     Route: 048
  16. OXAROL [Concomitant]
     Active Substance: MAXACALCITOL
     Dosage: 2.5 UG, Q56H
     Route: 065
     Dates: start: 20190830, end: 20200220

REACTIONS (1)
  - Shunt occlusion [Recovering/Resolving]

NARRATIVE: CASE EVENT DATE: 20200517
